FAERS Safety Report 23602182 (Version 1)
Quarter: 2024Q1

REPORT INFORMATION
  Report Type: Spontaneous
  Country: US (occurrence: None)
  Receive Date: 20240306
  Receipt Date: 20240306
  Transmission Date: 20240410
  Serious: Yes (Hospitalization)
  Sender: FDA-Public Use
  Company Number: None

PATIENT
  Sex: Female

DRUGS (11)
  1. POMALYST [Suspect]
     Active Substance: POMALIDOMIDE
     Indication: Plasma cell myeloma
     Dates: start: 20210417
  2. ACYCLOVIR [Concomitant]
  3. ANASTROZOLE [Concomitant]
  4. DEXAMETHASONE [Concomitant]
     Active Substance: DEXAMETHASONE
  5. ERYTHROMYCIN OIN [Concomitant]
  6. FAMOTIDINE [Concomitant]
  7. ACETAMINOPHEN\HYDROCODONE [Concomitant]
     Active Substance: ACETAMINOPHEN\HYDROCODONE
  8. MAGNESIUM TAB [Concomitant]
  9. MYRBETRIQ [Concomitant]
     Active Substance: MIRABEGRON
  10. NEO/POLY/DEX SUS [Concomitant]
  11. OXYBUTYNIN TAB [Concomitant]

REACTIONS (2)
  - Emotional disorder [None]
  - Therapy interrupted [None]
